FAERS Safety Report 24674746 (Version 2)
Quarter: 2024Q4

REPORT INFORMATION
  Report Type: Spontaneous
  Country: US (occurrence: US)
  Receive Date: 20241128
  Receipt Date: 20241209
  Transmission Date: 20250114
  Serious: Yes (Hospitalization)
  Sender: AMGEN
  Company Number: US-AMGEN-USASP2024230994

PATIENT
  Age: 48 Year
  Sex: Male

DRUGS (1)
  1. BLINCYTO [Suspect]
     Active Substance: BLINATUMOMAB
     Indication: Product used for unknown indication
     Dosage: UNK UNK, CONTINUING
     Route: 040
     Dates: start: 20241105

REACTIONS (1)
  - Procedural failure [Unknown]

NARRATIVE: CASE EVENT DATE: 20240101
